FAERS Safety Report 19668902 (Version 1)
Quarter: 2021Q3

REPORT INFORMATION
  Report Type: Spontaneous
  Country: US (occurrence: US)
  Receive Date: 20210806
  Receipt Date: 20210806
  Transmission Date: 20211014
  Serious: Yes (Disabling, Other)
  Sender: FDA-Public Use
  Company Number: US-SA-2021SA256346

PATIENT
  Sex: Male

DRUGS (1)
  1. LANTUS SOLOSTAR [Suspect]
     Active Substance: INSULIN GLARGINE
     Dosage: Q12H (50 UNITS IN THE MORNING AND 10 UNITS AT NIGHT)
     Route: 065

REACTIONS (3)
  - Disability [Unknown]
  - Product storage error [Unknown]
  - Inappropriate schedule of product administration [Unknown]
